FAERS Safety Report 15723948 (Version 1)
Quarter: 2018Q4

REPORT INFORMATION
  Report Type: Report from Study
  Country: BR (occurrence: BR)
  Receive Date: 20181214
  Receipt Date: 20181214
  Transmission Date: 20190205
  Serious: Yes (Other)
  Sender: FDA-Public Use
  Company Number: PHHY2018BR184016

PATIENT
  Sex: Male
  Weight: 72 kg

DRUGS (4)
  1. TRAVATAN [Suspect]
     Active Substance: TRAVOPROST
     Indication: GLAUCOMA
     Dosage: UNK UNK, QHS
     Route: 065
  2. DIAMOX SEQUELS [Suspect]
     Active Substance: ACETAZOLAMIDE
     Indication: INTRAOCULAR PRESSURE INCREASED
     Dosage: 250 MG, BID (IN THE MORNING AND NIGHT)
     Route: 048
     Dates: start: 20181029
  3. SAFLUTAN [Suspect]
     Active Substance: TAFLUPROST
     Indication: GLAUCOMA
     Dosage: 1 GTT, QN
     Route: 065
     Dates: start: 20181029
  4. SIMBRINZA [Suspect]
     Active Substance: BRIMONIDINE TARTRATE\BRINZOLAMIDE
     Indication: GLAUCOMA
     Dosage: 10 MG, BID (ONE DROP IN EACH EYE)
     Route: 065
     Dates: start: 20181029

REACTIONS (13)
  - Eye inflammation [Unknown]
  - Eye disorder [Unknown]
  - Eye pain [Unknown]
  - Lacrimation increased [Recovering/Resolving]
  - Dry eye [Recovering/Resolving]
  - Optic nerve injury [Unknown]
  - Anxiety [Unknown]
  - Eye allergy [Unknown]
  - Eye irritation [Recovering/Resolving]
  - Crying [Unknown]
  - Ocular hyperaemia [Recovering/Resolving]
  - Stress [Unknown]
  - Photophobia [Not Recovered/Not Resolved]
